FAERS Safety Report 17581555 (Version 1)
Quarter: 2020Q1

REPORT INFORMATION
  Report Type: Spontaneous
  Country: US (occurrence: US)
  Receive Date: 20200325
  Receipt Date: 20200325
  Transmission Date: 20200409
  Serious: Yes (Other)
  Sender: FDA-Public Use
  Company Number: US-ASTRAZENECA-2020SE41398

PATIENT
  Age: 70 Year
  Sex: Male

DRUGS (1)
  1. LYNPARZA [Suspect]
     Active Substance: OLAPARIB
     Indication: GASTROINTESTINAL CARCINOMA
     Route: 048

REACTIONS (3)
  - Carbon dioxide decreased [Unknown]
  - Product use in unapproved indication [Unknown]
  - BRCA1 gene mutation [Unknown]
